FAERS Safety Report 10843013 (Version 1)
Quarter: 2015Q1

REPORT INFORMATION
  Report Type: Spontaneous
  Country: US (occurrence: US)
  Receive Date: 20150220
  Receipt Date: 20150220
  Transmission Date: 20150721
  Serious: No
  Sender: FDA-Public Use
  Company Number: US-ABBVIE-14P-163-1257955-00

PATIENT
  Age: 72 Year
  Sex: Male
  Weight: 83.54 kg

DRUGS (7)
  1. HUMIRA [Suspect]
     Active Substance: ADALIMUMAB
     Dates: start: 201405
  2. UNKNOWN DEODORANT [Suspect]
     Active Substance: UNSPECIFIED INGREDIENT
     Indication: APPLICATION SITE PERSPIRATION
  3. HUMIRA [Suspect]
     Active Substance: ADALIMUMAB
     Indication: PSORIASIS
     Dates: start: 201405, end: 201405
  4. VITAMIN D [Concomitant]
     Active Substance: CHOLECALCIFEROL
     Indication: VITAMIN SUPPLEMENTATION
  5. CLOBETASOL [Concomitant]
     Active Substance: CLOBETASOL
     Indication: PSORIASIS
  6. SALICYLIC ACID. [Concomitant]
     Active Substance: SALICYLIC ACID
     Indication: PSORIASIS
  7. COENZYME Q10 [Concomitant]
     Active Substance: UBIDECARENONE
     Indication: ENZYME SUPPLEMENTATION

REACTIONS (3)
  - Fall [Recovered/Resolved]
  - Wrist fracture [Recovering/Resolving]
  - Rash [Recovering/Resolving]

NARRATIVE: CASE EVENT DATE: 201406
